FAERS Safety Report 9466451 (Version 2)
Quarter: 2013Q3

REPORT INFORMATION
  Report Type: Report from Study
  Country: US (occurrence: US)
  Receive Date: 20130820
  Receipt Date: 20130820
  Transmission Date: 20140515
  Serious: Yes (Hospitalization)
  Sender: FDA-Public Use
  Company Number: US-ACTELION-A-US2013-87005

PATIENT
  Age: 67 Year
  Sex: Female

DRUGS (3)
  1. VELETRI [Suspect]
     Indication: PULMONARY ARTERIAL HYPERTENSION
     Dosage: 69 NG/KG, PER MIN
     Route: 042
     Dates: start: 20110128
  2. REMODULIN [Suspect]
  3. COUMADIN [Concomitant]

REACTIONS (5)
  - Therapy change [Unknown]
  - Device related infection [Unknown]
  - Device issue [Unknown]
  - Headache [Unknown]
  - Pain [Unknown]
